FAERS Safety Report 6018017-2 (Version None)
Quarter: 2008Q4

REPORT INFORMATION
  Report Type: 
  Country: None (occurrence: None)
  Receive Date: 20081223
  Receipt Date: 20081217
  Transmission Date: 20090506
  Serious: Yes (Life-Threatening)
  Sender: FDA-Public Use
  Company Number: B0550740A

PATIENT
  Age: 79 Year
  Sex: Female

DRUGS (10)
  1. AEROCHAMBER [Suspect]
     Dates: start: 20081201
  2. AMLODIPINE [Suspect]
     Dosage: 5MG PER DAY
     Route: 048
  3. ASPIRIN [Suspect]
     Dosage: 75MG PER DAY
     Route: 048
  4. ATORVASTATIN CALCIUM [Suspect]
     Dosage: 10MG PER DAY
     Route: 048
  5. LANSOPRAZOLE [Suspect]
     Dosage: 30MG PER DAY
     Route: 048
  6. RANITIDINE [Suspect]
     Dosage: 150MG TWICE PER DAY
     Route: 048
  7. SERETIDE [Suspect]
     Indication: ASTHMA
     Dosage: 2PUFF TWICE PER DAY
     Route: 055
  8. TEMAZEPAM [Suspect]
     Dosage: 20MG AT NIGHT
     Route: 048
  9. VALSARTAN [Suspect]
     Dosage: 80MG PER DAY
     Route: 048
  10. VENTOLIN [Suspect]
     Indication: ASTHMA
     Dosage: 200MCG FOUR TIMES PER DAY

REACTIONS (2)
  - ASTHMA [None]
  - LOWER RESPIRATORY TRACT INFECTION [None]
